FAERS Safety Report 19500245 (Version 3)
Quarter: 2021Q3

REPORT INFORMATION
  Report Type: Spontaneous
  Country: IE (occurrence: IE)
  Receive Date: 20210706
  Receipt Date: 20210816
  Transmission Date: 20211014
  Serious: Yes (Hospitalization)
  Sender: FDA-Public Use
  Company Number: IE-MYLANLABS-2021M1039495

PATIENT
  Sex: Male

DRUGS (1)
  1. CLOZAPINE. [Suspect]
     Active Substance: CLOZAPINE
     Indication: SCHIZOPHRENIA
     Dosage: UNK
     Route: 048
     Dates: start: 20070320

REACTIONS (7)
  - Neutrophilia [Not Recovered/Not Resolved]
  - Off label use [Unknown]
  - Eosinophilia [Unknown]
  - Differential white blood cell count abnormal [Unknown]
  - Leukocytosis [Not Recovered/Not Resolved]
  - Hydronephrosis [Unknown]
  - Lymphoma [Unknown]

NARRATIVE: CASE EVENT DATE: 20210118
